FAERS Safety Report 20102492 (Version 1)
Quarter: 2021Q4

REPORT INFORMATION
  Report Type: Spontaneous
  Country: JP (occurrence: JP)
  Receive Date: 20211123
  Receipt Date: 20211123
  Transmission Date: 20220303
  Serious: Yes (Other)
  Sender: FDA-Public Use
  Company Number: JP-UCBSA-2021054836

PATIENT
  Age: 30 Year
  Sex: Male

DRUGS (4)
  1. KEPPRA [Suspect]
     Active Substance: LEVETIRACETAM
     Indication: Prophylaxis
     Dosage: 1000 MILLIGRAM/DAY
  2. KEPPRA [Suspect]
     Active Substance: LEVETIRACETAM
     Dosage: 3000 MILLIGRAM/DAY
  3. VIMPAT [Suspect]
     Active Substance: LACOSAMIDE
     Indication: Aphasia
     Dosage: 100 MILLIGRAM/DAY
  4. VIMPAT [Suspect]
     Active Substance: LACOSAMIDE
     Dosage: 200 MILLIGRAM/DAY

REACTIONS (2)
  - Aphasia [Recovered/Resolved]
  - Product use in unapproved indication [Unknown]
